FAERS Safety Report 19962754 (Version 2)
Quarter: 2021Q4

REPORT INFORMATION
  Report Type: Other
  Country: US (occurrence: US)
  Receive Date: 20211018
  Receipt Date: 20211026
  Transmission Date: 20220303
  Serious: No
  Sender: FDA-Public Use
  Company Number: US-ROCHE-2934016

PATIENT
  Age: 42 Year
  Sex: Female
  Weight: 63.56 kg

DRUGS (2)
  1. OCREVUS [Suspect]
     Active Substance: OCRELIZUMAB
     Indication: Multiple sclerosis
     Dosage: TWICE A YEAR
     Route: 042
     Dates: start: 2020
  2. IRON [Concomitant]
     Active Substance: IRON
     Indication: Blood iron decreased
     Route: 048

REACTIONS (1)
  - COVID-19 [Recovered/Resolved]

NARRATIVE: CASE EVENT DATE: 20210903
